FAERS Safety Report 8145439-6 (Version None)
Quarter: 2012Q1

REPORT INFORMATION
  Report Type: 
  Country: None (occurrence: None)
  Receive Date: 20120217
  Receipt Date: 20120209
  Transmission Date: 20120608
  Serious: Yes (Other)
  Sender: FDA-Public Use
  Company Number: US-ABBOTT-12P-163-0903553-00

PATIENT
  Sex: Male

DRUGS (1)
  1. HUMIRA [Suspect]
     Indication: COLITIS ULCERATIVE
     Dates: start: 20080101, end: 20100101

REACTIONS (5)
  - OFF LABEL USE [None]
  - COLITIS ULCERATIVE [None]
  - COLECTOMY TOTAL [None]
  - DRUG INEFFECTIVE [None]
  - PELVIC POUCH PROCEDURE [None]
